FAERS Safety Report 9842825 (Version 2)
Quarter: 2014Q1

REPORT INFORMATION
  Report Type: Spontaneous
  Country: FR (occurrence: FR)
  Receive Date: 20140124
  Receipt Date: 20140324
  Transmission Date: 20141002
  Serious: Yes (Hospitalization)
  Sender: FDA-Public Use
  Company Number: FR-BRISTOL-MYERS SQUIBB COMPANY-20048070

PATIENT
  Age: 54 Year
  Sex: Male

DRUGS (9)
  1. AZACTAM FOR INJ 1 GM [Suspect]
     Indication: ILEUS
     Route: 042
     Dates: start: 20131008, end: 20131112
  2. TAZOCILLINE [Suspect]
     Indication: ILEUS
     Route: 042
     Dates: start: 20131015, end: 20131105
  3. FLAGYL [Suspect]
     Indication: ILEUS
     Route: 042
     Dates: start: 20131008, end: 20131112
  4. DAFALGAN [Concomitant]
     Route: 048
     Dates: start: 20131022, end: 20131108
  5. FRAGMINE [Concomitant]
     Dosage: 1 DF: 5000 IU
     Route: 058
     Dates: start: 20131001, end: 20131108
  6. EUPANTOL [Concomitant]
     Route: 048
     Dates: start: 20131001, end: 20131108
  7. AMLODIPINE [Concomitant]
     Route: 048
     Dates: start: 20131011, end: 20131108
  8. LASILIX [Concomitant]
     Route: 048
     Dates: start: 20131015, end: 20131108
  9. PRALIDOXIME CHLORIDE [Concomitant]
     Route: 048
     Dates: start: 20131001, end: 20131118

REACTIONS (1)
  - Agranulocytosis [Recovered/Resolved]
